FAERS Safety Report 9982031 (Version 1)
Quarter: 2014Q1

REPORT INFORMATION
  Report Type: Report from Study
  Country: US (occurrence: US)
  Receive Date: 20140307
  Receipt Date: 20140307
  Transmission Date: 20141002
  Serious: No
  Sender: FDA-Public Use
  Company Number: US-ABBVIE-13P-163-1181953-00

PATIENT
  Age: 28 Year
  Sex: Female

DRUGS (7)
  1. HUMIRA [Suspect]
     Indication: CROHN^S DISEASE
     Dates: start: 20131001
  2. IMURAN [Concomitant]
     Indication: CROHN^S DISEASE
     Route: 048
  3. TRAMADOL [Concomitant]
     Indication: PAIN
     Dosage: EVERY 4-6 HOURS
     Route: 048
  4. LORAZEPAM [Concomitant]
     Indication: ANXIETY
     Route: 048
  5. LOESTRIN [Concomitant]
     Indication: CONTRACEPTION
     Route: 048
  6. RETINOL [Concomitant]
     Indication: PUSTULAR PSORIASIS
     Route: 061
  7. CLOBETASOL [Concomitant]
     Indication: PUSTULAR PSORIASIS
     Route: 061

REACTIONS (1)
  - Crohn^s disease [Not Recovered/Not Resolved]
